FAERS Safety Report 5480742-X (Version None)
Quarter: 2007Q4

REPORT INFORMATION
  Report Type: 
  Country: None (occurrence: None)
  Receive Date: 20071009
  Receipt Date: 20071003
  Transmission Date: 20080405
  Serious: Yes (Life-Threatening)
  Sender: FDA-Public Use
  Company Number: FR-GENENTECH-249018

PATIENT
  Sex: Male

DRUGS (1)
  1. RITUXIMAB [Suspect]
     Indication: MANTLE CELL LYMPHOMA

REACTIONS (2)
  - GASTROINTESTINAL HAEMORRHAGE [None]
  - MUCOSAL HAEMORRHAGE [None]
